FAERS Safety Report 16905605 (Version 6)
Quarter: 2022Q3

REPORT INFORMATION
  Report Type: Spontaneous
  Country: US (occurrence: US)
  Receive Date: 20191010
  Receipt Date: 20220909
  Transmission Date: 20221027
  Serious: Yes (Death, Hospitalization, Other)
  Sender: FDA-Public Use
  Company Number: US-PFIZER INC-2019435586

PATIENT
  Age: 57 Year
  Sex: Male
  Weight: 136 kg

DRUGS (2)
  1. DILANTIN [Suspect]
     Active Substance: PHENYTOIN
     Indication: Seizure
     Dosage: 300 MG, 2X/DAY (3 CAPSULES IN THE MORNING AND 3 AT NIGHT.)
  2. DILANTIN [Suspect]
     Active Substance: PHENYTOIN
     Indication: Epilepsy

REACTIONS (4)
  - Death [Fatal]
  - Road traffic accident [Recovered/Resolved]
  - Diabetes mellitus [Not Recovered/Not Resolved]
  - Weight increased [Unknown]

NARRATIVE: CASE EVENT DATE: 20190101
